FAERS Safety Report 22073895 (Version 1)
Quarter: 2023Q1

REPORT INFORMATION
  Report Type: Spontaneous
  Country: US (occurrence: None)
  Receive Date: 20230307
  Receipt Date: 20230307
  Transmission Date: 20230418
  Serious: Yes (Life-Threatening, Hospitalization, Other)
  Sender: FDA-Public Use
  Company Number: None

PATIENT
  Age: 14 Year
  Sex: Female
  Weight: 77 kg

DRUGS (2)
  1. SEVOFLURANE [Suspect]
     Active Substance: SEVOFLURANE
     Indication: General anaesthesia
  2. KETAMINE [Suspect]
     Active Substance: KETAMINE
     Dosage: OTHER FREQUENCY : ONCE;?
     Route: 030
     Dates: start: 20230214, end: 20230214

REACTIONS (3)
  - Hyperkalaemia [None]
  - Idiopathic intracranial hypertension [None]
  - Blood creatine phosphokinase MB [None]

NARRATIVE: CASE EVENT DATE: 20230214
